FAERS Safety Report 13270874 (Version 3)
Quarter: 2017Q1

REPORT INFORMATION
  Report Type: Report from Study
  Country: US (occurrence: US)
  Receive Date: 20170225
  Receipt Date: 20170323
  Transmission Date: 20170428
  Serious: Yes (Other)
  Sender: FDA-Public Use
  Company Number: US-BRISTOL-MYERS SQUIBB COMPANY-BMS-2017-014294

PATIENT
  Sex: Male

DRUGS (1)
  1. NIVOLUMAB [Suspect]
     Active Substance: NIVOLUMAB
     Indication: MALIGNANT MELANOMA
     Route: 042

REACTIONS (11)
  - Decreased appetite [Unknown]
  - Myalgia [Unknown]
  - Spinal operation [Unknown]
  - Cough [Unknown]
  - Abdominal pain upper [Unknown]
  - Appetite disorder [Unknown]
  - Emergency care examination [Unknown]
  - Vomiting [Unknown]
  - Muscular weakness [Unknown]
  - Malaise [Unknown]
  - Infrequent bowel movements [Unknown]
